FAERS Safety Report 7296237-7 (Version None)
Quarter: 2011Q1

REPORT INFORMATION
  Report Type: 
  Country: None (occurrence: None)
  Receive Date: 20110216
  Receipt Date: 20110210
  Transmission Date: 20110831
  Serious: Yes (Other)
  Sender: FDA-Public Use
  Company Number: JP-ELI_LILLY_AND_COMPANY-JP201102003367

PATIENT
  Age: 83 Year
  Sex: Female

DRUGS (4)
  1. GEMZAR [Suspect]
     Dosage: 600 MG/M2, UNK
     Route: 050
  2. CISPLATIN [Concomitant]
     Indication: GALLBLADDER CANCER STAGE IV
     Dosage: 10 MG, UNK
     Route: 050
  3. GEMZAR [Suspect]
     Indication: GALLBLADDER CANCER STAGE IV
     Dosage: 1000 MG/M2, UNK
     Route: 042
  4. GEMZAR [Suspect]
     Dosage: 400 MG/M2, UNK
     Route: 042

REACTIONS (8)
  - ASCITES [None]
  - DUODENAL PERFORATION [None]
  - NEOPLASM PROGRESSION [None]
  - CARBOHYDRATE ANTIGEN 19-9 INCREASED [None]
  - CARCINOEMBRYONIC ANTIGEN INCREASED [None]
  - METASTASES TO SPINE [None]
  - HAEMATOTOXICITY [None]
  - INCORRECT ROUTE OF DRUG ADMINISTRATION [None]
